FAERS Safety Report 23454063 (Version 2)
Quarter: 2024Q1

REPORT INFORMATION
  Report Type: Report from Study
  Country: US (occurrence: US)
  Receive Date: 20240130
  Receipt Date: 20240201
  Transmission Date: 20240409
  Serious: Yes (Other)
  Sender: FDA-Public Use
  Company Number: US-ABBVIE-5603517

PATIENT
  Sex: Female

DRUGS (2)
  1. SKYRIZI [Suspect]
     Active Substance: RISANKIZUMAB-RZAA
     Indication: Crohn^s disease
     Dosage: FORM STRENGTH 360 MILLIGRAM
     Route: 058
     Dates: start: 20240123
  2. SKYRIZI [Suspect]
     Active Substance: RISANKIZUMAB-RZAA
     Indication: Crohn^s disease
     Dosage: LAST ADMIN DATE:2023? FORM STRENGTH: 600 MILLIGRAM
     Route: 042
     Dates: start: 20231031

REACTIONS (4)
  - Ostomy bag placement [Unknown]
  - Drug ineffective [Unknown]
  - Clostridium difficile infection [Unknown]
  - Device issue [Unknown]
